FAERS Safety Report 18564921 (Version 2)
Quarter: 2020Q4

REPORT INFORMATION
  Report Type: Report from Study
  Country: PL (occurrence: PL)
  Receive Date: 20201201
  Receipt Date: 20201210
  Transmission Date: 20210114
  Serious: Yes (Life-Threatening, Hospitalization)
  Sender: FDA-Public Use
  Company Number: PL-ROCHE-2723275

PATIENT
  Age: 51 Year
  Sex: Male
  Weight: 70 kg

DRUGS (97)
  1. AMERTIL [Concomitant]
     Active Substance: CETIRIZINE HYDROCHLORIDE
     Dosage: WEEK 24
     Dates: start: 20130108
  2. AMERTIL [Concomitant]
     Active Substance: CETIRIZINE HYDROCHLORIDE
     Dosage: OLE-WEEK 192
     Dates: start: 20180212
  3. PARACETAMOL [Concomitant]
     Active Substance: ACETAMINOPHEN
     Dosage: WEEK 48
     Dates: start: 20130624
  4. PARACETAMOL [Concomitant]
     Active Substance: ACETAMINOPHEN
     Dosage: OLE-WEEK 144
     Dates: start: 20170315
  5. PARACETAMOL [Concomitant]
     Active Substance: ACETAMINOPHEN
     Dosage: OLE-WEEK 168
     Dates: start: 20170905
  6. PARACETAMOL [Concomitant]
     Active Substance: ACETAMINOPHEN
     Dosage: OLE-WEEK 192
     Dates: start: 20180212
  7. METHYLPREDNISOLONE. [Concomitant]
     Active Substance: METHYLPREDNISOLONE
     Dosage: WEEK 24
     Dates: start: 20130108, end: 20130108
  8. METHYLPREDNISOLONE. [Concomitant]
     Active Substance: METHYLPREDNISOLONE
     Dosage: WEEK 48
     Dates: start: 20130624, end: 20130624
  9. METHYLPREDNISOLONE. [Concomitant]
     Active Substance: METHYLPREDNISOLONE
     Dosage: OLE-WEEK 168
     Dates: start: 20170905, end: 20170905
  10. EUTHYROX N [Concomitant]
     Active Substance: LEVOTHYROXINE SODIUM
     Dosage: DOSE- 175.00 MICROGRAM
     Dates: start: 20130210, end: 20131010
  11. EUTHYROX N [Concomitant]
     Active Substance: LEVOTHYROXINE SODIUM
     Dosage: DOSE- 125.00 MICROGRAM
     Dates: start: 20131105, end: 20140911
  12. EUTHYROX N [Concomitant]
     Active Substance: LEVOTHYROXINE SODIUM
     Dosage: DOSE- 12.50 MICROGRAM
     Dates: start: 20120723, end: 20120803
  13. OCRELIZUMAB. [Suspect]
     Active Substance: OCRELIZUMAB
     Dosage: WEEK 216
     Route: 042
     Dates: start: 20180808, end: 20180808
  14. OCRELIZUMAB. [Suspect]
     Active Substance: OCRELIZUMAB
     Dosage: WEEK 264
     Route: 042
     Dates: start: 20190710, end: 20190710
  15. AMERTIL [Concomitant]
     Active Substance: CETIRIZINE HYDROCHLORIDE
     Dosage: WEEK 48
     Dates: start: 20130624
  16. AMERTIL [Concomitant]
     Active Substance: CETIRIZINE HYDROCHLORIDE
     Dosage: OLE-WEEK 144
     Dates: start: 20170315
  17. AMERTIL [Concomitant]
     Active Substance: CETIRIZINE HYDROCHLORIDE
     Dosage: OLE-WEEK 264
     Dates: start: 20190710
  18. PARACETAMOL [Concomitant]
     Active Substance: ACETAMINOPHEN
     Dosage: WEEK 72
     Dates: start: 20131209
  19. PARACETAMOL [Concomitant]
     Active Substance: ACETAMINOPHEN
     Dosage: OLE-WEEK 48
     Dates: start: 20150519
  20. METHYLPREDNISOLONE. [Concomitant]
     Active Substance: METHYLPREDNISOLONE
     Dosage: OLE-WEEK 120
     Dates: start: 20160927, end: 20160927
  21. EUTHYROX N [Concomitant]
     Active Substance: LEVOTHYROXINE SODIUM
     Dosage: DOSE- 137.00 MICROGRAM
     Dates: start: 201603, end: 20171106
  22. EUTHYROX N [Concomitant]
     Active Substance: LEVOTHYROXINE SODIUM
     Dosage: DOSE- 50.00
     Dates: start: 20120811, end: 20120824
  23. OSPEN [Concomitant]
     Active Substance: PENICILLIN V
     Dates: start: 202010, end: 202010
  24. PLACEBO [Suspect]
     Active Substance: UNSPECIFIED INGREDIENT
     Dosage: BASELINE (WEEK 24)
     Route: 042
     Dates: start: 20130108, end: 20130108
  25. PARACETAMOL [Concomitant]
     Active Substance: ACETAMINOPHEN
     Dosage: OLE-WEEK 240
     Dates: start: 20190123
  26. METHYLPREDNISOLONE. [Concomitant]
     Active Substance: METHYLPREDNISOLONE
     Dosage: OLE-WEEK 24
     Dates: start: 20141126, end: 20141126
  27. METHYLPREDNISOLONE. [Concomitant]
     Active Substance: METHYLPREDNISOLONE
     Dosage: OLE-WEEK 264
     Dates: start: 20190710, end: 20190710
  28. CIPRINOL [Concomitant]
     Active Substance: CIPROFLOXACIN
     Indication: URINARY TRACT INFECTION
     Dates: start: 20121204, end: 20121212
  29. OCRELIZUMAB. [Suspect]
     Active Substance: OCRELIZUMAB
     Dosage: WEEK 24
     Route: 042
     Dates: start: 20141126, end: 20141126
  30. OCRELIZUMAB. [Suspect]
     Active Substance: OCRELIZUMAB
     Dosage: WEEK 48
     Route: 042
     Dates: start: 20150519, end: 20150519
  31. OCRELIZUMAB. [Suspect]
     Active Substance: OCRELIZUMAB
     Dosage: WEEK 168
     Route: 042
     Dates: start: 20170905, end: 20170905
  32. AMERTIL [Concomitant]
     Active Substance: CETIRIZINE HYDROCHLORIDE
     Dosage: OLE-WEEK 240
     Dates: start: 20190123
  33. PARACETAMOL [Concomitant]
     Active Substance: ACETAMINOPHEN
     Dosage: BASELINE (WEEK 1)
     Dates: start: 20120723
  34. PARACETAMOL [Concomitant]
     Active Substance: ACETAMINOPHEN
     Dosage: OLE-WEEK 24
     Dates: start: 20141126
  35. EUTHYROX N [Concomitant]
     Active Substance: LEVOTHYROXINE SODIUM
     Dosage: DOSE- 100.00 MICROGRAM
     Dates: start: 20120908, end: 20121109
  36. EUTHYROX N [Concomitant]
     Active Substance: LEVOTHYROXINE SODIUM
     Dosage: DOSE- 150.00 MICROGRAM
     Dates: start: 20130111, end: 20130209
  37. EUTHYROX N [Concomitant]
     Active Substance: LEVOTHYROXINE SODIUM
     Dosage: DOSE- 150.00 MICROGRAM
     Dates: start: 20130210, end: 20131010
  38. EUTHYROX N [Concomitant]
     Active Substance: LEVOTHYROXINE SODIUM
     Dosage: DOSE- 150.00 MICROGRAM
     Dates: start: 20131011, end: 20131016
  39. OCRELIZUMAB. [Suspect]
     Active Substance: OCRELIZUMAB
     Dosage: WEEK 288
     Route: 042
     Dates: start: 20191217, end: 20191217
  40. AMERTIL [Concomitant]
     Active Substance: CETIRIZINE HYDROCHLORIDE
     Dosage: OLE-WEEK 0
     Dates: start: 20140613
  41. AMERTIL [Concomitant]
     Active Substance: CETIRIZINE HYDROCHLORIDE
     Dosage: OLE-WEEK 2
     Dates: start: 20140625
  42. AMERTIL [Concomitant]
     Active Substance: CETIRIZINE HYDROCHLORIDE
     Dosage: OLE-WEEK 72
     Dates: start: 20151102
  43. AMERTIL [Concomitant]
     Active Substance: CETIRIZINE HYDROCHLORIDE
     Dosage: OLE-WEEK 96
     Dates: start: 20160415
  44. PARACETAMOL [Concomitant]
     Active Substance: ACETAMINOPHEN
     Dosage: WEEK 24
     Dates: start: 20130108
  45. PARACETAMOL [Concomitant]
     Active Substance: ACETAMINOPHEN
     Dosage: OLE-WEEK 2
     Dates: start: 20140625
  46. PARACETAMOL [Concomitant]
     Active Substance: ACETAMINOPHEN
     Dosage: OLE-WEEK 72
     Dates: start: 20151102
  47. PARACETAMOL [Concomitant]
     Active Substance: ACETAMINOPHEN
     Dosage: OLE-WEEK 264
     Dates: start: 20190710
  48. PARACETAMOL [Concomitant]
     Active Substance: ACETAMINOPHEN
     Dosage: OLE-WEEK 288
     Dates: start: 20191217
  49. METHYLPREDNISOLONE. [Concomitant]
     Active Substance: METHYLPREDNISOLONE
     Dosage: OLE-WEEK 0
     Dates: start: 20140613, end: 20140613
  50. METHYLPREDNISOLONE. [Concomitant]
     Active Substance: METHYLPREDNISOLONE
     Dosage: OLE-WEEK 0
     Dates: start: 20140613, end: 20140613
  51. METHYLPREDNISOLONE. [Concomitant]
     Active Substance: METHYLPREDNISOLONE
     Dosage: OLE-WEEK 144
     Dates: start: 20170315, end: 20170315
  52. METHYLPREDNISOLONE. [Concomitant]
     Active Substance: METHYLPREDNISOLONE
     Dosage: OLE-WEEK 288
     Dates: start: 20191217, end: 20191217
  53. INTERFERON BETA-1A [Suspect]
     Active Substance: INTERFERON BETA-1A
     Indication: RELAPSING-REMITTING MULTIPLE SCLEROSIS
     Route: 058
     Dates: start: 20120723, end: 20140611
  54. OCRELIZUMAB. [Suspect]
     Active Substance: OCRELIZUMAB
     Indication: RELAPSING-REMITTING MULTIPLE SCLEROSIS
     Dosage: WEEK 0?300 MG INFUSIONS ON DAYS 1 AND 15 FOR THE FIRST DOSE AND AS A SINGLE INFUSION OF 600 MG FOR A
     Route: 042
     Dates: start: 20140613
  55. OCRELIZUMAB. [Suspect]
     Active Substance: OCRELIZUMAB
     Dosage: WEEK 72
     Route: 042
     Dates: start: 20151102, end: 20151102
  56. OCRELIZUMAB. [Suspect]
     Active Substance: OCRELIZUMAB
     Dosage: WEEK 240
     Route: 042
     Dates: start: 20190123, end: 20190123
  57. AMERTIL [Concomitant]
     Active Substance: CETIRIZINE HYDROCHLORIDE
     Dosage: OLE-WEEK 48
     Dates: start: 20150519
  58. AMERTIL [Concomitant]
     Active Substance: CETIRIZINE HYDROCHLORIDE
     Dosage: OLE-WEEK 120
     Dates: start: 20160927
  59. AMERTIL [Concomitant]
     Active Substance: CETIRIZINE HYDROCHLORIDE
     Dosage: OLE-WEEK 168
     Dates: start: 20170905
  60. PARACETAMOL [Concomitant]
     Active Substance: ACETAMINOPHEN
     Dosage: WEEK 2
     Dates: start: 20120806
  61. METHYLPREDNISOLONE. [Concomitant]
     Active Substance: METHYLPREDNISOLONE
     Dosage: WEEK 2
     Dates: start: 20120806, end: 20120806
  62. METHYLPREDNISOLONE. [Concomitant]
     Active Substance: METHYLPREDNISOLONE
     Dosage: OLE-WEEK 0
     Dates: start: 20150519, end: 20150519
  63. METHYLPREDNISOLONE. [Concomitant]
     Active Substance: METHYLPREDNISOLONE
     Dosage: OLE-WEEK 72
     Dates: start: 20151102, end: 20151102
  64. METHYLPREDNISOLONE. [Concomitant]
     Active Substance: METHYLPREDNISOLONE
     Dosage: OLE-WEEK 96
     Dates: start: 20160415, end: 20160415
  65. METHYLPREDNISOLONE. [Concomitant]
     Active Substance: METHYLPREDNISOLONE
     Dosage: OLE-WEEK 240
     Dates: start: 20190123, end: 20190123
  66. METHYLPREDNISOLONE. [Concomitant]
     Active Substance: METHYLPREDNISOLONE
     Dosage: OLE-WEEK 216
     Dates: start: 20180808, end: 20180808
  67. EUTHYROX N [Concomitant]
     Active Substance: LEVOTHYROXINE SODIUM
     Dosage: DOSE- 25.00 MICROGRAM
     Dates: start: 20120804, end: 20120810
  68. EUTHYROX N [Concomitant]
     Active Substance: LEVOTHYROXINE SODIUM
     Dosage: DOSE- 75.00 MICROGRAM
     Dates: start: 20120825, end: 20120907
  69. EUTHYROX N [Concomitant]
     Active Substance: LEVOTHYROXINE SODIUM
     Dosage: DOSE- 100.00 MICROGRAM
     Dates: start: 20131017, end: 20131104
  70. CIPRINOL [Concomitant]
     Active Substance: CIPROFLOXACIN
     Dates: start: 20130226, end: 20130302
  71. PLACEBO [Suspect]
     Active Substance: UNSPECIFIED INGREDIENT
     Indication: RELAPSING-REMITTING MULTIPLE SCLEROSIS
     Dosage: BASELINE (WEEK 1)?INFUSIONS ON DAYS 1 AND 15 FOR THE FIRST DOSE AND AS A SINGLE INFUSION AND FOR ALL
     Route: 042
     Dates: start: 20120723, end: 20120723
  72. PLACEBO [Suspect]
     Active Substance: UNSPECIFIED INGREDIENT
     Dosage: BASELINE (WEEK 2)
     Route: 042
     Dates: start: 20120806, end: 20120806
  73. PLACEBO [Suspect]
     Active Substance: UNSPECIFIED INGREDIENT
     Dosage: BASELINE (WEEK 48)
     Route: 042
     Dates: start: 20130624, end: 20130624
  74. PLACEBO [Suspect]
     Active Substance: UNSPECIFIED INGREDIENT
     Dosage: BASELINE (WEEK 72)
     Route: 042
     Dates: start: 20131209, end: 20131209
  75. OCRELIZUMAB. [Suspect]
     Active Substance: OCRELIZUMAB
     Dosage: WEEK 2
     Route: 042
     Dates: start: 20140625, end: 20140625
  76. OCRELIZUMAB. [Suspect]
     Active Substance: OCRELIZUMAB
     Dosage: WEEK 120
     Route: 042
     Dates: start: 20160927, end: 20160927
  77. OCRELIZUMAB. [Suspect]
     Active Substance: OCRELIZUMAB
     Dosage: WEEK 144
     Route: 042
     Dates: start: 20170315, end: 20170315
  78. AMERTIL [Concomitant]
     Active Substance: CETIRIZINE HYDROCHLORIDE
     Dosage: BASELINE (WEEK 1)
     Dates: start: 20120723
  79. AMERTIL [Concomitant]
     Active Substance: CETIRIZINE HYDROCHLORIDE
     Dosage: WEEK 2
     Dates: start: 20120806
  80. AMERTIL [Concomitant]
     Active Substance: CETIRIZINE HYDROCHLORIDE
     Dosage: OLE-WEEK 216
     Dates: start: 20180808
  81. PARACETAMOL [Concomitant]
     Active Substance: ACETAMINOPHEN
     Dosage: OLE-WEEK 96
     Dates: start: 20160415
  82. PARACETAMOL [Concomitant]
     Active Substance: ACETAMINOPHEN
     Dosage: OLE-WEEK 216
     Dates: start: 20180808
  83. METHYLPREDNISOLONE. [Concomitant]
     Active Substance: METHYLPREDNISOLONE
     Dosage: WEEK 72
     Dates: start: 20131209, end: 20131209
  84. METHYLPREDNISOLONE. [Concomitant]
     Active Substance: METHYLPREDNISOLONE
     Dosage: OLE-WEEK 2
     Dates: start: 20140625, end: 20140625
  85. METHYLPREDNISOLONE. [Concomitant]
     Active Substance: METHYLPREDNISOLONE
     Dosage: OLE-WEEK 192
     Dates: start: 20180212, end: 20180212
  86. EUTHYROX N [Concomitant]
     Active Substance: LEVOTHYROXINE SODIUM
     Dosage: DOSE- 125.00 MICROGRAM
     Dates: start: 20171107
  87. CIPRINOL [Concomitant]
     Active Substance: CIPROFLOXACIN
     Dates: start: 202010, end: 202010
  88. OCRELIZUMAB. [Suspect]
     Active Substance: OCRELIZUMAB
     Dosage: WEEK 96
     Route: 042
     Dates: start: 20160415, end: 20160415
  89. OCRELIZUMAB. [Suspect]
     Active Substance: OCRELIZUMAB
     Dosage: WEEK 192
     Route: 042
     Dates: start: 20180212, end: 20180212
  90. AMERTIL [Concomitant]
     Active Substance: CETIRIZINE HYDROCHLORIDE
     Dosage: WEEK 72
     Dates: start: 20131209
  91. AMERTIL [Concomitant]
     Active Substance: CETIRIZINE HYDROCHLORIDE
     Dosage: OLE-WEEK 24
     Dates: start: 20141126
  92. AMERTIL [Concomitant]
     Active Substance: CETIRIZINE HYDROCHLORIDE
     Dosage: OLE-WEEK 288
     Dates: start: 20191217
  93. PARACETAMOL [Concomitant]
     Active Substance: ACETAMINOPHEN
     Dosage: OLE-WEEK 0
     Dates: start: 20140613
  94. PARACETAMOL [Concomitant]
     Active Substance: ACETAMINOPHEN
     Dosage: OLE-WEEK 120
     Dates: start: 20160927
  95. EUTHYROX N [Concomitant]
     Active Substance: LEVOTHYROXINE SODIUM
     Dosage: DOSE- 112.00 MICROGRAM
     Dates: start: 20121110, end: 20130110
  96. EUTHYROX N [Concomitant]
     Active Substance: LEVOTHYROXINE SODIUM
     Dosage: DOSE- 150.00 MICROGRAM
     Dates: start: 20140912, end: 201603
  97. METRONIDAZOLE. [Concomitant]
     Active Substance: METRONIDAZOLE
     Dates: start: 202011, end: 202011

REACTIONS (1)
  - Pyrexia [Not Recovered/Not Resolved]

NARRATIVE: CASE EVENT DATE: 20201125
